FAERS Safety Report 7893561-1 (Version None)
Quarter: 2011Q4

REPORT INFORMATION
  Report Type: 
  Country: None (occurrence: None)
  Receive Date: 20111104
  Receipt Date: 20111027
  Transmission Date: 20120403
  Serious: Yes (Hospitalization)
  Sender: FDA-Public Use
  Company Number: US-JNJFOC-20110901807

PATIENT
  Sex: Male
  Weight: 41.41 kg

DRUGS (5)
  1. REMICADE [Suspect]
     Indication: INFLAMMATORY BOWEL DISEASE
     Route: 042
     Dates: start: 20080619, end: 20100321
  2. HUMIRA [Concomitant]
     Dates: start: 20100409
  3. FISH OIL [Concomitant]
  4. FOCALIN [Concomitant]
  5. AMITRIPTYLINE HCL [Concomitant]

REACTIONS (1)
  - ILEAL STENOSIS [None]
